FAERS Safety Report 9768223 (Version 2)
Quarter: 2014Q1

REPORT INFORMATION
  Report Type: Spontaneous
  Country: IT (occurrence: IT)
  Receive Date: 20131217
  Receipt Date: 20140211
  Transmission Date: 20141002
  Serious: Yes (Other)
  Sender: FDA-Public Use
  Company Number: IT-BRISTOL-MYERS SQUIBB COMPANY-19895739

PATIENT
  Age: 46 Year
  Sex: Female

DRUGS (5)
  1. ABILIFY [Suspect]
     Indication: INTENTIONAL SELF-INJURY
     Dosage: CPR 30MG
     Route: 048
  2. INVEGA [Suspect]
     Indication: INTENTIONAL SELF-INJURY
     Dosage: CPR 6MG
     Route: 048
  3. DEPAKIN [Suspect]
     Indication: INTENTIONAL SELF-INJURY
     Dosage: CPR 500MG
     Route: 048
  4. AKINETON [Suspect]
     Indication: INTENTIONAL SELF-INJURY
     Dosage: CPR 2MG
     Route: 048
  5. DELORAZEPAM [Suspect]
     Indication: INTENTIONAL SELF-INJURY
     Dosage: CPR
     Route: 048

REACTIONS (2)
  - Drug abuse [Unknown]
  - Bradyphrenia [Unknown]
